FAERS Safety Report 19856040 (Version 1)
Quarter: 2021Q3

REPORT INFORMATION
  Report Type: Spontaneous
  Country: US (occurrence: US)
  Receive Date: 20210920
  Receipt Date: 20210920
  Transmission Date: 20211014
  Serious: Yes (Other)
  Sender: FDA-Public Use
  Company Number: None

PATIENT
  Age: 51 Year
  Sex: Female
  Weight: 55.8 kg

DRUGS (13)
  1. TACROLIMUS. [Suspect]
     Active Substance: TACROLIMUS
     Indication: DERMATITIS
     Route: 061
  2. GLUTAMINE [Concomitant]
     Active Substance: GLUTAMINE
  3. MOMETASONE FUROATE OINTMENT USP 0.1% [Suspect]
     Active Substance: MOMETASONE FUROATE
     Indication: DERMATITIS
     Dosage: ?          QUANTITY:1 1;?
     Route: 061
  4. MULTIVITAMIN [Concomitant]
     Active Substance: VITAMINS
  5. DIABEND [Concomitant]
  6. BIO ADEK MULSION [Concomitant]
  7. ION GUT HEALTH, [Concomitant]
  8. LIVER CHI [Concomitant]
  9. DRENATROPHIN PMG [Concomitant]
  10. SP CLEANSE [Concomitant]
  11. CLARITIN [Concomitant]
     Active Substance: LORATADINE
  12. CLASSICAL AND WATER PEARLS, [Concomitant]
  13. SKIN SUPPORT HONEOPATHY [Concomitant]

REACTIONS (5)
  - Drug ineffective [None]
  - Skin burning sensation [None]
  - Dependence [None]
  - Withdrawal syndrome [None]
  - Erythema [None]

NARRATIVE: CASE EVENT DATE: 20210601
